FAERS Safety Report 6409309-3 (Version None)
Quarter: 2009Q4

REPORT INFORMATION
  Report Type: 
  Country: None (occurrence: None)
  Receive Date: 20091021
  Receipt Date: 20090928
  Transmission Date: 20100525
  Serious: Yes (Other)
  Sender: FDA-Public Use
  Company Number: CHPA2009US19324

PATIENT
  Age: 81 Year
  Sex: Female
  Weight: 52.154 kg

DRUGS (1)
  1. BENEFIBER UNKNOWN (NCH) [Suspect]
     Indication: CONSTIPATION
     Dosage: UNK
     Route: 048
     Dates: end: 20090901

REACTIONS (2)
  - DIARRHOEA [None]
  - TRANSIENT ISCHAEMIC ATTACK [None]
